FAERS Safety Report 4560176-2 (Version None)
Quarter: 2005Q1

REPORT INFORMATION
  Report Type: 
  Country: None (occurrence: None)
  Receive Date: 20050125
  Receipt Date: 20040726
  Transmission Date: 20050727
  Serious: Yes (Hospitalization)
  Sender: FDA-Public Use
  Company Number: 200412372EU

PATIENT
  Age: 72 Year
  Sex: Male
  Weight: 68 kg

DRUGS (11)
  1. DOCETAXEL [Suspect]
     Indication: NON-SMALL CELL LUNG CANCER STAGE IIIB
     Route: 042
     Dates: start: 20040617, end: 20040714
  2. CARBOPLATIN [Suspect]
     Indication: NON-SMALL CELL LUNG CANCER STAGE IIIB
     Route: 042
     Dates: start: 20040617, end: 20040714
  3. RADIOTHERAPY [Suspect]
     Indication: NON-SMALL CELL LUNG CANCER STAGE IIIB
     Dosage: DOSE: 54 GY
     Dates: start: 20040616, end: 20040722
  4. NOVONORM [Concomitant]
     Indication: DIABETES MELLITUS NON-INSULIN-DEPENDENT
     Route: 048
  5. DIANBEN [Concomitant]
     Indication: DIABETES MELLITUS NON-INSULIN-DEPENDENT
     Route: 048
  6. DIOVAN [Concomitant]
     Indication: HYPERTENSION
     Route: 048
  7. CANADIOL [Concomitant]
     Indication: DRUG USE FOR UNKNOWN INDICATION
     Route: 048
  8. DURAGESIC [Concomitant]
     Indication: PAIN
     Route: 048
  9. RABEPRAZOLE SODIUM [Concomitant]
     Indication: DRUG USE FOR UNKNOWN INDICATION
     Route: 048
  10. MYCOSTATIN [Concomitant]
     Indication: SYSTEMIC ANTIBACTERIAL THERAPY
     Route: 048
  11. ACETAMINOPHEN [Concomitant]
     Indication: ANALGESIC EFFECT

REACTIONS (3)
  - DYSPHAGIA [None]
  - MUCOSAL INFLAMMATION [None]
  - RADIATION MUCOSITIS [None]
